FAERS Safety Report 21417249 (Version 1)
Quarter: 2022Q4

REPORT INFORMATION
  Report Type: Report from Study
  Country: US (occurrence: None)
  Receive Date: 20221006
  Receipt Date: 20221006
  Transmission Date: 20230113
  Serious: Yes (Hospitalization, Other)
  Sender: FDA-Public Use
  Company Number: 2022A335776

PATIENT
  Age: 22445 Day
  Sex: Female

DRUGS (9)
  1. LYNPARZA [Suspect]
     Active Substance: OLAPARIB
     Indication: Pancreatic carcinoma
     Route: 048
     Dates: start: 20220718
  2. LYNPARZA [Suspect]
     Active Substance: OLAPARIB
     Indication: Pancreatic carcinoma
     Route: 048
     Dates: start: 20220718
  3. ELIQUIS [Concomitant]
     Active Substance: APIXABAN
  4. RETACRIT [Concomitant]
     Active Substance: EPOETIN ALFA-EPBX
  5. GLIPIZIDE ER [Concomitant]
     Active Substance: GLIPIZIDE
  6. PRILOSEC [Concomitant]
     Active Substance: OMEPRAZOLE MAGNESIUM
  7. MAGNESIUM [Concomitant]
     Active Substance: MAGNESIUM
  8. CALTRATE [Concomitant]
     Active Substance: CALCIUM CARBONATE
  9. VITAMINS [Concomitant]
     Active Substance: VITAMINS

REACTIONS (7)
  - Myelofibrosis [Not Recovered/Not Resolved]
  - Pyrexia [Unknown]
  - Chills [Unknown]
  - Iron overload [Not Recovered/Not Resolved]
  - Neuropathy peripheral [Not Recovered/Not Resolved]
  - Anaemia [Unknown]
  - Metastases to liver [Not Recovered/Not Resolved]

NARRATIVE: CASE EVENT DATE: 20220916
